FAERS Safety Report 21697895 (Version 1)
Quarter: 2022Q4

REPORT INFORMATION
  Report Type: Spontaneous
  Country: GB (occurrence: GB)
  Receive Date: 20221208
  Receipt Date: 20221208
  Transmission Date: 20230113
  Serious: No
  Sender: FDA-Public Use
  Company Number: None

PATIENT
  Age: 27 Year
  Sex: Female
  Weight: 95.8 kg

DRUGS (16)
  1. TOLVAPTAN [Suspect]
     Active Substance: TOLVAPTAN
     Indication: Congenital cystic kidney disease
     Dosage: 15 MILLIGRAM TABLET (UNCOATED)
     Route: 048
     Dates: start: 20180510
  2. TOLVAPTAN [Suspect]
     Active Substance: TOLVAPTAN
     Indication: Brachyolmia
     Dosage: 60 MILLIGRAM (TABLET UNCOATED)
     Route: 048
     Dates: start: 20210510
  3. TOLVAPTAN [Suspect]
     Active Substance: TOLVAPTAN
     Dosage: 30 MILLIGRAM (TABLET UNCOATED)
     Route: 048
     Dates: start: 20210510
  4. TOLVAPTAN [Suspect]
     Active Substance: TOLVAPTAN
     Dosage: 45 MILLIGRAM (TABLET UNCOATED)
     Route: 048
     Dates: start: 20180510
  5. TOLVAPTAN [Suspect]
     Active Substance: TOLVAPTAN
     Dosage: 60 MILLIGRAM (TABLET UNCOATED)
     Route: 048
     Dates: start: 20210221
  6. TOLVAPTAN [Suspect]
     Active Substance: TOLVAPTAN
     Dosage: 30 MILLIGRAM (TABLET UNCOATED)
     Route: 048
     Dates: start: 20180913
  7. TOLVAPTAN [Suspect]
     Active Substance: TOLVAPTAN
     Dosage: 60 MILLIGRAM (TABLET UNCOATED)
     Route: 048
     Dates: start: 20210221
  8. TOLVAPTAN [Suspect]
     Active Substance: TOLVAPTAN
     Dosage: 30 MILLIGRAM (TABLET UNCOATED)
     Route: 048
     Dates: start: 20180712
  9. TOLVAPTAN [Suspect]
     Active Substance: TOLVAPTAN
     Dosage: 60 MILLIGRAM (TABLET UNCOATED)
     Route: 048
     Dates: start: 20180614
  10. TOLVAPTAN [Suspect]
     Active Substance: TOLVAPTAN
     Dosage: 90 MILLIGRAM (TABLET UNCOATED)
     Route: 048
     Dates: start: 20220715
  11. TOLVAPTAN [Suspect]
     Active Substance: TOLVAPTAN
     Dosage: 30 MILLIGRAM (TABLET UNCOATED)
     Route: 048
     Dates: start: 20210221
  12. TOLVAPTAN [Suspect]
     Active Substance: TOLVAPTAN
     Dosage: 30 MILLIGRAM (TABLET UNCOATED)
     Route: 048
     Dates: start: 20180614
  13. TOLVAPTAN [Suspect]
     Active Substance: TOLVAPTAN
     Dosage: 90 MILLIGRAM (TABLET UNCOATED)
     Route: 048
     Dates: start: 20180712
  14. TOLVAPTAN [Suspect]
     Active Substance: TOLVAPTAN
     Dosage: 30 MILLIGRAM (TABLET UNCOATED)
     Route: 048
     Dates: start: 20220715
  15. TOLVAPTAN [Suspect]
     Active Substance: TOLVAPTAN
     Dosage: 90 MILLIGRAM (TABLET UNCOATED)
     Route: 048
     Dates: start: 20210221
  16. TOLVAPTAN [Suspect]
     Active Substance: TOLVAPTAN
     Dosage: 60 MILLIGRAM (TABLET UNCOATED)
     Route: 048
     Dates: start: 20180913

REACTIONS (4)
  - Polydipsia [Recovering/Resolving]
  - Polydipsia [Recovering/Resolving]
  - Polyuria [Recovering/Resolving]
  - Polyuria [Recovering/Resolving]

NARRATIVE: CASE EVENT DATE: 20180712
